FAERS Safety Report 6861102-3 (Version None)
Quarter: 2010Q3

REPORT INFORMATION
  Report Type: 
  Country: None (occurrence: None)
  Receive Date: 20100720
  Receipt Date: 20100706
  Transmission Date: 20110219
  Serious: Yes (Other)
  Sender: FDA-Public Use
  Company Number: ES-PURDUE-GBR-2010-0006765

PATIENT
  Sex: Male

DRUGS (2)
  1. NON-PMN MORPHINE SULFATE [Suspect]
  2. CLONIDINE [Suspect]

REACTIONS (1)
  - INJECTION SITE NODULE [None]
